FAERS Safety Report 8097766-9 (Version None)
Quarter: 2012Q1

REPORT INFORMATION
  Report Type: 
  Country: None (occurrence: None)
  Receive Date: 20120128
  Receipt Date: 20110819
  Transmission Date: 20120608
  Serious: No
  Sender: FDA-Public Use
  Company Number: US-ABBOTT-11P-163-0839946-00

PATIENT
  Sex: Male
  Weight: 86.26 kg

DRUGS (4)
  1. IBUPROFEN [Concomitant]
     Indication: PAIN
  2. IBUPROFEN [Concomitant]
     Indication: INFLAMMATION
  3. HUMIRA [Suspect]
     Indication: PSORIASIS
     Dates: start: 20100101, end: 20110401
  4. HUMIRA [Suspect]
     Indication: PSORIATIC ARTHROPATHY
     Dates: start: 20110601

REACTIONS (5)
  - TOOTH FRACTURE [None]
  - INCORRECT DOSE ADMINISTERED [None]
  - TOOTH INFECTION [None]
  - WRONG TECHNIQUE IN DRUG USAGE PROCESS [None]
  - INJECTION SITE PAIN [None]
